FAERS Safety Report 11704392 (Version 1)
Quarter: 2015Q4

REPORT INFORMATION
  Report Type: Spontaneous
  Country: None (occurrence: None)
  Receive Date: 20151105
  Receipt Date: 20151105
  Transmission Date: 20160304
  Serious: Yes (Other)
  Sender: FDA-Public Use
  Company Number: None

PATIENT
  Age: 19 Year
  Sex: Male
  Weight: 58.97 kg

DRUGS (5)
  1. MULTIVITAMIN [Concomitant]
     Active Substance: VITAMINS
  2. VITAMIN B12 [Concomitant]
     Active Substance: CYANOCOBALAMIN
  3. ALBUTEROL INHALER [Concomitant]
     Active Substance: ALBUTEROL
  4. BIOTIN [Concomitant]
     Active Substance: BIOTIN
  5. ADRAFINIL ADRAFINIL 300 MG [Suspect]
     Active Substance: ADRAFINIL
     Dosage: 2 PILLS DAILY
     Route: 048

REACTIONS (5)
  - Middle insomnia [None]
  - Migraine [None]
  - Influenza [None]
  - Drug effect decreased [None]
  - Restlessness [None]

NARRATIVE: CASE EVENT DATE: 20150301
